FAERS Safety Report 5877494-8 (Version None)
Quarter: 2008Q3

REPORT INFORMATION
  Report Type: 
  Country: None (occurrence: None)
  Receive Date: 20080909
  Receipt Date: 20080904
  Transmission Date: 20090109
  Serious: Yes (Hospitalization)
  Sender: FDA-Public Use
  Company Number: SP01914

PATIENT
  Age: 58 Year
  Sex: Female

DRUGS (3)
  1. OSMOPREP [Suspect]
     Indication: COLONOSCOPY
     Dosage: (SPLIT DOSE), ORAL
     Route: 048
     Dates: start: 20080501, end: 20080501
  2. OSMOPREP [Suspect]
     Indication: COLONOSCOPY
     Dosage: (SPLIT DOSE), ORAL
     Route: 048
     Dates: start: 20080501, end: 20080501
  3. UNSPECIFIED ANTIHYPERTENSIVE [Concomitant]

REACTIONS (3)
  - BLOOD CREATININE INCREASED [None]
  - NEPHROPATHY [None]
  - URINARY RETENTION [None]
